FAERS Safety Report 4587271-6 (Version None)
Quarter: 2005Q1

REPORT INFORMATION
  Report Type: 
  Country: None (occurrence: None)
  Receive Date: 20050215
  Receipt Date: 20050209
  Transmission Date: 20050727
  Serious: Yes (Other)
  Sender: FDA-Public Use
  Company Number: 2005019278

PATIENT
  Age: 36 Year
  Sex: Female
  Weight: 50 kg

DRUGS (4)
  1. RELPAX [Suspect]
     Indication: MIGRAINE
     Dosage: ORAL
     Route: 048
     Dates: start: 20030101
  2. KETOPROFEN [Concomitant]
  3. PIZOTIFEN MALEATE (PIZOTIFEN MALEATE) [Concomitant]
  4. VILOXAZINE HYDROCHLORIDE (VILOXAZINE HYDROCHLORIDE) [Concomitant]

REACTIONS (1)
  - DRUG ABUSER [None]
